FAERS Safety Report 9229945 (Version 3)
Quarter: 2013Q2

REPORT INFORMATION
  Report Type: Report from Study
  Country: US (occurrence: US)
  Receive Date: 20130415
  Receipt Date: 20130423
  Transmission Date: 20140414
  Serious: Yes (Other)
  Sender: FDA-Public Use
  Company Number: US-JNJFOC-20130405461

PATIENT
  Sex: Female

DRUGS (2)
  1. DOXORUBICIN HYDROCHLORIDE (DOXIL) [Suspect]
     Indication: BREAST CANCER METASTATIC
     Route: 042
  2. DOXORUBICIN HYDROCHLORIDE (DOXIL) [Suspect]
     Indication: BREAST CANCER METASTATIC
     Route: 042

REACTIONS (4)
  - Skin toxicity [Unknown]
  - Herpes zoster [Unknown]
  - Pain in extremity [Unknown]
  - Laceration [Unknown]
